FAERS Safety Report 7511863-5 (Version None)
Quarter: 2011Q2

REPORT INFORMATION
  Report Type: 
  Country: None (occurrence: None)
  Receive Date: 20110531
  Receipt Date: 20110525
  Transmission Date: 20111010
  Serious: Yes (Other)
  Sender: FDA-Public Use
  Company Number: CH-PFIZER INC-2011112423

PATIENT
  Sex: Male

DRUGS (2)
  1. LYRICA [Suspect]
     Indication: NEURALGIA
  2. LYRICA [Suspect]
     Indication: DIABETIC NEUROPATHY
     Dosage: 2X 100 MG

REACTIONS (2)
  - HYPOMANIA [None]
  - BIPOLAR DISORDER [None]
